FAERS Safety Report 7529349-0 (Version None)
Quarter: 2011Q2

REPORT INFORMATION
  Report Type: 
  Country: None (occurrence: None)
  Receive Date: 20110607
  Receipt Date: 20110527
  Transmission Date: 20111010
  Serious: Yes (Hospitalization)
  Sender: FDA-Public Use
  Company Number: DE-SANOFI-AVENTIS-2011SA033346

PATIENT
  Age: 48 Year
  Sex: Female

DRUGS (6)
  1. DOCETAXEL [Suspect]
     Route: 042
     Dates: start: 20110216, end: 20110216
  2. CAPECITABINE [Suspect]
     Route: 048
     Dates: start: 20110216, end: 20110322
  3. PAROXETINE HCL [Concomitant]
     Dates: start: 20030101
  4. DOCETAXEL [Suspect]
     Route: 042
     Dates: start: 20110309, end: 20110309
  5. BEVACIZUMAB [Suspect]
     Route: 042
     Dates: start: 20110216, end: 20110216
  6. LEVOTHYROXINE SODIUM [Concomitant]
     Dates: start: 20030101

REACTIONS (2)
  - CARDIOVASCULAR DISORDER [None]
  - GENERAL PHYSICAL HEALTH DETERIORATION [None]
